FAERS Safety Report 7762519-5 (Version None)
Quarter: 2011Q3

REPORT INFORMATION
  Report Type: 
  Country: None (occurrence: None)
  Receive Date: 20110920
  Receipt Date: 20110630
  Transmission Date: 20111222
  Serious: Yes (Other)
  Sender: FDA-Public Use
  Company Number: US-MYLANLABS-2011S1011905

PATIENT
  Age: 66 Year
  Sex: Female

DRUGS (10)
  1. CRESTOR [Concomitant]
  2. ZOMETA [Concomitant]
  3. LOTREL [Concomitant]
  4. CALCIUM CARBONATE [Concomitant]
  5. ANASTROZOLE [Suspect]
     Indication: BREAST CANCER
     Dates: start: 20101207
  6. MAGNESIUM [Concomitant]
  7. COUMADIN [Concomitant]
  8. FOLBIC [Concomitant]
  9. NEXIUM [Concomitant]
  10. SYNTHROID [Concomitant]

REACTIONS (1)
  - PULMONARY EMBOLISM [None]
